FAERS Safety Report 6619016-X (Version None)
Quarter: 2010Q1

REPORT INFORMATION
  Report Type: 
  Country: None (occurrence: None)
  Receive Date: 20100308
  Receipt Date: 20100225
  Transmission Date: 20100710
  Serious: Yes (Other)
  Sender: FDA-Public Use
  Company Number: US-TYCO HEALTHCARE/MALLINCKRODT-T201000700

PATIENT
  Sex: Male

DRUGS (1)
  1. OPTIRAY 350 [Suspect]
     Indication: COMPUTERISED TOMOGRAM
     Dosage: 75 ML, SINGLE
     Route: 042
     Dates: start: 20100211, end: 20100211

REACTIONS (6)
  - CONVULSION [None]
  - DIZZINESS [None]
  - ERYTHEMA [None]
  - EYELID OEDEMA [None]
  - MUSCULOSKELETAL CHEST PAIN [None]
  - TINNITUS [None]
